FAERS Safety Report 7125126-3 (Version None)
Quarter: 2010Q4

REPORT INFORMATION
  Report Type: 
  Country: None (occurrence: None)
  Receive Date: 20101129
  Receipt Date: 20101027
  Transmission Date: 20110411
  Serious: Yes (Hospitalization, Other)
  Sender: FDA-Public Use
  Company Number: US-AMGEN-USASP2010002138

PATIENT

DRUGS (4)
  1. ARANESP [Suspect]
     Indication: HAEMOLYTIC ANAEMIA
     Dosage: 300 A?G, Q2WK
  2. ARANESP [Suspect]
     Dosage: 150 A?G, UNK
     Dates: start: 20030101
  3. COUMADIN [Concomitant]
     Dosage: UNK
     Dates: start: 19700101
  4. DIURETICS [Concomitant]

REACTIONS (14)
  - ANAEMIA [None]
  - ASTHENIA [None]
  - CAT SCRATCH DISEASE [None]
  - CHROMATURIA [None]
  - DECREASED APPETITE [None]
  - GASTROINTESTINAL DISORDER [None]
  - LYME DISEASE [None]
  - MALAISE [None]
  - OEDEMA PERIPHERAL [None]
  - PULMONARY EMBOLISM [None]
  - PYREXIA [None]
  - RENAL FAILURE [None]
  - THROMBOSIS [None]
  - WEIGHT DECREASED [None]
